FAERS Safety Report 23553765 (Version 1)
Quarter: 2024Q1

REPORT INFORMATION
  Report Type: Spontaneous
  Country: US (occurrence: None)
  Receive Date: 20240221
  Receipt Date: 20240221
  Transmission Date: 20240409
  Serious: Yes (Life-Threatening, Other)
  Sender: FDA-Public Use
  Company Number: None

PATIENT
  Age: 41 Year
  Sex: Female
  Weight: 92.7 kg

DRUGS (2)
  1. MONOFERRIC [Suspect]
     Active Substance: FERRIC DERISOMALTOSE
     Indication: Iron deficiency anaemia
     Dosage: ONE DOSE INTRAVENOUS
     Route: 042
     Dates: start: 20240221, end: 20240221
  2. WOMEN^S ONE A DAY GUMMY VITAMINS VITACRAVES [Concomitant]

REACTIONS (15)
  - Respiration abnormal [None]
  - Speech disorder [None]
  - Paralysis [None]
  - Burning sensation [None]
  - Tremor [None]
  - Chills [None]
  - Vulvovaginal burning sensation [None]
  - Uterine pain [None]
  - Visual impairment [None]
  - Hyperhidrosis [None]
  - Cold sweat [None]
  - Diarrhoea [None]
  - Heart rate increased [None]
  - Blood pressure increased [None]
  - Infusion related reaction [None]

NARRATIVE: CASE EVENT DATE: 20240221
